FAERS Safety Report 23012140 (Version 5)
Quarter: 2023Q4

REPORT INFORMATION
  Report Type: Spontaneous
  Country: FR (occurrence: FR)
  Receive Date: 20230930
  Receipt Date: 20231107
  Transmission Date: 20240110
  Serious: Yes (Hospitalization)
  Sender: FDA-Public Use
  Company Number: None

PATIENT
  Age: 55 Year
  Sex: Male
  Weight: 68 kg

DRUGS (10)
  1. DEPAKOTE [Suspect]
     Active Substance: DIVALPROEX SODIUM
     Indication: Schizophrenia
     Route: 048
  2. LORMETAZEPAM [Suspect]
     Active Substance: LORMETAZEPAM
     Indication: Sleep disorder therapy
     Route: 048
  3. CLOZAPINE [Suspect]
     Active Substance: CLOZAPINE
     Indication: Schizophrenia
     Dosage: 700 MG
     Route: 048
  4. ATROPINE SULFATE [Suspect]
     Active Substance: ATROPINE SULFATE
     Indication: Salivary hypersecretion
     Dosage: TIME INTERVAL: 1 AS NECESSARY: 1 GTT DROPS (MORNING AND EVENING IF HYPERSIALORRHEA)?1 DROP, PRN
     Route: 060
  5. TERALITHE [Suspect]
     Active Substance: LITHIUM CARBONATE
     Indication: Schizophrenia
     Dosage: FORM STRENGTH: 400 MG
     Route: 048
     Dates: start: 20230904
  6. TERALITHE [Suspect]
     Active Substance: LITHIUM CARBONATE
     Indication: Schizophrenia
     Dosage: FORM STRENGTH: 1200 MG
     Route: 048
     Dates: end: 20230830
  7. TERALITHE [Suspect]
     Active Substance: LITHIUM CARBONATE
     Indication: Schizophrenia
     Dosage: FORM STRENGTH: 800 MG
     Route: 048
     Dates: start: 20230901, end: 20230903
  8. RISPERIDONE [Suspect]
     Active Substance: RISPERIDONE
     Indication: Schizophrenia
     Route: 048
     Dates: start: 20230904
  9. RISPERIDONE [Suspect]
     Active Substance: RISPERIDONE
     Indication: Schizophrenia
     Route: 048
     Dates: end: 20230903
  10. TROPATEPINE HYDROCHLORIDE [Suspect]
     Active Substance: TROPATEPINE HYDROCHLORIDE
     Indication: Parkinsonism
     Route: 048

REACTIONS (3)
  - Fall [Recovering/Resolving]
  - Drug interaction [Recovered/Resolved]
  - Extrapyramidal disorder [Recovering/Resolving]

NARRATIVE: CASE EVENT DATE: 20230821
